FAERS Safety Report 5571252-X (Version None)
Quarter: 2007Q4

REPORT INFORMATION
  Report Type: 
  Country: None (occurrence: None)
  Receive Date: 20071221
  Receipt Date: 20070326
  Transmission Date: 20080405
  Serious: No
  Sender: FDA-Public Use
  Company Number: A0644617A

PATIENT
  Age: 65 Year
  Sex: Female

DRUGS (7)
  1. FLONASE [Suspect]
     Dosage: 50MCG PER DAY
     Route: 045
     Dates: start: 20070201
  2. COZAAR [Concomitant]
  3. ATENOLOL [Concomitant]
  4. TRIAMTERENE AND HYDROCHLOROTHIAZIDE [Concomitant]
  5. CARDURA [Concomitant]
  6. ESTRADIOL [Concomitant]
  7. POTASSIUM CHLORIDE [Concomitant]

REACTIONS (6)
  - BLOOD PRESSURE INCREASED [None]
  - DRUG INEFFECTIVE [None]
  - EYELID OEDEMA [None]
  - EYELIDS PRURITUS [None]
  - HEADACHE [None]
  - HEART RATE INCREASED [None]
